FAERS Safety Report 21740645 (Version 1)
Quarter: 2022Q4

REPORT INFORMATION
  Report Type: Spontaneous
  Country: ES (occurrence: ES)
  Receive Date: 20221216
  Receipt Date: 20221216
  Transmission Date: 20230113
  Serious: Yes (Other)
  Sender: FDA-Public Use
  Company Number: ES-BAYER-2022P029005

PATIENT
  Age: 49 Year
  Sex: Female

DRUGS (2)
  1. NAPROXEN SODIUM [Suspect]
     Active Substance: NAPROXEN SODIUM
  2. LORAZEPAM [Suspect]
     Active Substance: LORAZEPAM

REACTIONS (10)
  - Suicide attempt [None]
  - Overdose [None]
  - Poisoning deliberate [None]
  - Metabolic acidosis [None]
  - Rhabdomyolysis [None]
  - Renal failure [None]
  - Compartment syndrome [None]
  - Leg amputation [None]
  - Peripheral ischaemia [None]
  - Pulse absent [None]
